FAERS Safety Report 8353940-5 (Version None)
Quarter: 2012Q2

REPORT INFORMATION
  Report Type: 
  Country: None (occurrence: None)
  Receive Date: 20120511
  Receipt Date: 20120508
  Transmission Date: 20120825
  Serious: Yes (Life-Threatening, Hospitalization)
  Sender: FDA-Public Use
  Company Number: US-ASTRAZENECA-2012SE18160

PATIENT
  Age: 41 Year
  Sex: Female

DRUGS (5)
  1. BRILINTA [Suspect]
     Route: 048
  2. BRILINTA [Suspect]
     Route: 048
  3. COUMADIN [Suspect]
     Route: 065
  4. ASPIRIN [Suspect]
     Route: 065
  5. PLAVIX [Suspect]
     Route: 065

REACTIONS (4)
  - CHEST PAIN [None]
  - CORONARY ARTERY OCCLUSION [None]
  - THROMBOSIS IN DEVICE [None]
  - IN-STENT CORONARY ARTERY RESTENOSIS [None]
